FAERS Safety Report 21443262 (Version 1)
Quarter: 2022Q4

REPORT INFORMATION
  Report Type: Spontaneous
  Country: KR (occurrence: KR)
  Receive Date: 20221012
  Receipt Date: 20221012
  Transmission Date: 20230113
  Serious: Yes (Other)
  Sender: FDA-Public Use
  Company Number: KR-BAYER-2022A137370

PATIENT
  Age: 65 Year
  Sex: Female

DRUGS (4)
  1. RIVAROXABAN [Suspect]
     Active Substance: RIVAROXABAN
     Indication: Deep vein thrombosis
     Route: 048
  2. ATEZOLIZUMAB [Concomitant]
     Active Substance: ATEZOLIZUMAB
  3. CAPMATINIB [Concomitant]
     Active Substance: CAPMATINIB
     Dosage: 400 MG, BID
  4. PACLITAXEL [Concomitant]
     Active Substance: PACLITAXEL

REACTIONS (2)
  - Gastrointestinal haemorrhage [Unknown]
  - Hypovolaemic shock [Unknown]
